FAERS Safety Report 15793148 (Version 1)
Quarter: 2019Q1

REPORT INFORMATION
  Report Type: Spontaneous
  Country: US (occurrence: US)
  Receive Date: 20190107
  Receipt Date: 20190107
  Transmission Date: 20190417
  Serious: No
  Sender: FDA-Public Use
  Company Number: US-ASTRAZENECA-2018SF71528

PATIENT
  Age: 21960 Day
  Sex: Female
  Weight: 57.2 kg

DRUGS (2)
  1. BYDUREON [Suspect]
     Active Substance: EXENATIDE
     Indication: TYPE 2 DIABETES MELLITUS
     Route: 058
     Dates: start: 20181221
  2. BYDUREON BCISE [Suspect]
     Active Substance: EXENATIDE
     Indication: TYPE 2 DIABETES MELLITUS
     Route: 058
     Dates: start: 20181214

REACTIONS (26)
  - Lethargy [Unknown]
  - Chromaturia [Unknown]
  - Abdominal pain upper [Unknown]
  - Blood glucose abnormal [Unknown]
  - Dyspnoea [Unknown]
  - Cerebral disorder [Unknown]
  - Drug ineffective [Unknown]
  - Renal pain [Unknown]
  - Malaise [Unknown]
  - Asthenia [Unknown]
  - Dyspepsia [Unknown]
  - Injection site pruritus [Unknown]
  - Heart rate abnormal [Unknown]
  - Chest discomfort [Unknown]
  - Injection site pain [Unknown]
  - Cough [Unknown]
  - Mental impairment [Unknown]
  - Oral discharge [Unknown]
  - Abdominal discomfort [Unknown]
  - Dizziness [Unknown]
  - Injection site erythema [Unknown]
  - Hypophagia [Unknown]
  - Eructation [Unknown]
  - Nausea [Unknown]
  - Headache [Unknown]
  - Injection site urticaria [Unknown]

NARRATIVE: CASE EVENT DATE: 20181214
